FAERS Safety Report 8160079-0 (Version None)
Quarter: 2012Q1

REPORT INFORMATION
  Report Type: 
  Country: None (occurrence: None)
  Receive Date: 20120223
  Receipt Date: 20120214
  Transmission Date: 20120608
  Serious: Yes (Other)
  Sender: FDA-Public Use
  Company Number: PHHY2012US015193

PATIENT
  Age: 58 Year
  Sex: Male

DRUGS (4)
  1. BACTRIM DS [Suspect]
  2. RIFAMPICIN [Suspect]
  3. VANCOMYCIN [Concomitant]
  4. CUBICIN [Suspect]
     Indication: ENDOCARDITIS STAPHYLOCOCCAL

REACTIONS (1)
  - CARDIAC VALVE VEGETATION [None]
